FAERS Safety Report 20651182 (Version 2)
Quarter: 2022Q2

REPORT INFORMATION
  Report Type: Report from Study
  Country: IL (occurrence: IL)
  Receive Date: 20220329
  Receipt Date: 20220401
  Transmission Date: 20220721
  Serious: Yes (Hospitalization, Other)
  Sender: FDA-Public Use
  Company Number: IL-ABBVIE-22K-082-4316030-00

PATIENT
  Age: 88 Year
  Sex: Male
  Weight: 88 kg

DRUGS (25)
  1. VENETOCLAX [Suspect]
     Active Substance: VENETOCLAX
     Indication: Acute myeloid leukaemia
     Dosage: 100 MG, RAMP UP
     Route: 048
     Dates: start: 20201009, end: 20201009
  2. VENETOCLAX [Suspect]
     Active Substance: VENETOCLAX
     Dosage: 200 MG, RAMP UP
     Route: 048
     Dates: start: 20201010, end: 20201010
  3. VENETOCLAX [Suspect]
     Active Substance: VENETOCLAX
     Dosage: 400 MG, RAMP UP. INTERRUPTION
     Route: 048
     Dates: start: 20201011, end: 20201101
  4. VENETOCLAX [Suspect]
     Active Substance: VENETOCLAX
     Dosage: 400 MG, INTERRUPTION COUNT RECOVERY (ANC, PLATELETS OR HEMOGLOBIN)
     Route: 048
     Dates: start: 20201220, end: 20210126
  5. VENETOCLAX [Suspect]
     Active Substance: VENETOCLAX
     Dosage: 400 MG, INTERRUPTION DOSE REDUCTIONCOUNT RECOVERY (ANC, PLATELETS OR HEMOGLOBIN)
     Route: 048
     Dates: start: 20210201, end: 20210301
  6. VENETOCLAX [Suspect]
     Active Substance: VENETOCLAX
     Dosage: 400 MG, INTERRUPTION DOSE REDUCTION COUNT RECOVERY (ANC, PLATELETS OR HEMOGLOBIN)
     Route: 048
     Dates: start: 20210307, end: 20210327
  7. VENETOCLAX [Suspect]
     Active Substance: VENETOCLAX
     Dosage: 400 MG, DOSE REDUCTION COUNT RECOVERY (ANC, PLATELETS OR HEMOGLOBIN)
     Route: 048
     Dates: start: 20210411, end: 20210501
  8. VENETOCLAX [Suspect]
     Active Substance: VENETOCLAX
     Dosage: 400 MG, INTERRUPTION COUNT RECOVERY (ANC, PLATELETS OR HEMOGLOBIN)
     Route: 048
     Dates: start: 20210623, end: 20210721
  9. VENETOCLAX [Suspect]
     Active Substance: VENETOCLAX
     Dosage: 400 MG,DISCONTINUATION PROGRESSION OF DISEASE
     Route: 048
     Dates: start: 20210922, end: 20211212
  10. AZACITIDINE [Suspect]
     Active Substance: AZACITIDINE
     Indication: Acute myeloid leukaemia
     Dosage: 150 MG, CYCLE 1
     Route: 058
     Dates: start: 20201009, end: 20201015
  11. AZACITIDINE [Suspect]
     Active Substance: AZACITIDINE
     Dosage: 150 MG, CYCLE 2
     Route: 058
     Dates: start: 20201108, end: 20201116
  12. AZACITIDINE [Suspect]
     Active Substance: AZACITIDINE
     Dosage: 150 MG, CYCLE 3
     Route: 058
     Dates: start: 20201220, end: 20201228
  13. AZACITIDINE [Suspect]
     Active Substance: AZACITIDINE
     Dosage: 150 MG, CYCLE 4
     Route: 058
     Dates: start: 20210201, end: 20210209
  14. AZACITIDINE [Suspect]
     Active Substance: AZACITIDINE
     Dosage: 150 MG, CYCLE 5
     Route: 058
     Dates: start: 20210307, end: 20210315
  15. AZACITIDINE [Suspect]
     Active Substance: AZACITIDINE
     Dosage: 150 MG, CYCLE 6
     Route: 058
     Dates: start: 20210411, end: 20210420
  16. AZACITIDINE [Suspect]
     Active Substance: AZACITIDINE
     Dosage: 150 MG, CYCLE 7
     Route: 058
     Dates: start: 20210623, end: 20210701
  17. AZACITIDINE [Suspect]
     Active Substance: AZACITIDINE
     Dosage: 150 MG, CYCLE 8 , INTERRUPTION ADVERSE EVENT
     Route: 058
     Dates: start: 20210922, end: 20211018
  18. SIMVASTATIN [Concomitant]
     Active Substance: SIMVASTATIN
     Indication: Hypercholesterolaemia
     Dates: start: 20111216
  19. ASPIRIN [Concomitant]
     Active Substance: ASPIRIN
     Indication: Prophylaxis
     Dates: start: 20190815
  20. METFORMIN [Concomitant]
     Active Substance: METFORMIN HYDROCHLORIDE
     Indication: Diabetes mellitus
     Dates: start: 20180703
  21. LOSARTAN POTASSIUM AND HYDROCHLOROTHIAZIDE [Concomitant]
     Active Substance: HYDROCHLOROTHIAZIDE\LOSARTAN POTASSIUM
     Indication: Hypertension
     Dates: start: 20191117
  22. OXAZEPAM [Concomitant]
     Active Substance: OXAZEPAM
     Indication: Anxiolytic therapy
     Dates: start: 20171203
  23. PFIZER-BIONTECH COVID-19 VACCINE [Concomitant]
     Active Substance: TOZINAMERAN
     Indication: COVID-19 immunisation
     Route: 030
     Dates: start: 20210126, end: 20210126
  24. PFIZER-BIONTECH COVID-19 VACCINE [Concomitant]
     Active Substance: TOZINAMERAN
     Route: 030
     Dates: start: 20210216, end: 20210216
  25. ALLOPURINOL [Concomitant]
     Active Substance: ALLOPURINOL
     Indication: Prophylaxis
     Dates: start: 20201009

REACTIONS (2)
  - Dysphonia [Recovered/Resolved]
  - Disease progression [Unknown]

NARRATIVE: CASE EVENT DATE: 20211103
